FAERS Safety Report 12830949 (Version 1)
Quarter: 2016Q4

REPORT INFORMATION
  Report Type: Spontaneous
  Country: US (occurrence: US)
  Receive Date: 20161007
  Receipt Date: 20161007
  Transmission Date: 20170207
  Serious: Yes (Hospitalization)
  Sender: FDA-Public Use
  Company Number: US-RELYPSA-RLY2016002807

PATIENT
  Sex: Female

DRUGS (22)
  1. VICODIN [Concomitant]
     Active Substance: ACETAMINOPHEN\HYDROCODONE BITARTRATE
  2. VITAMIN A                          /00056001/ [Concomitant]
     Active Substance: RETINOL
  3. VITAMIN E                          /00110501/ [Concomitant]
     Active Substance: TOCOPHEROL
  4. VELTASSA [Suspect]
     Active Substance: PATIROMER
     Indication: HYPERKALAEMIA
     Dosage: 8.4 G, QD
     Route: 048
  5. VITAMIN D                          /00107901/ [Concomitant]
     Active Substance: ERGOCALCIFEROL
  6. MELATONIN [Concomitant]
     Active Substance: MELATONIN
  7. SODIUM BICARBONATE. [Concomitant]
     Active Substance: SODIUM BICARBONATE
  8. VITAMIN B COMPLEX [Concomitant]
     Active Substance: CYANOCOBALAMIN\DEXPANTHENOL\NIACINAMIDE\PYRIDOXINE HYDROCHLORIDE\RIBOFLAVIN 5^-PHOSPHATE SODIUM\THIAMINE HYDROCHLORIDE\VITAMIN B COMPLEX
  9. GABAPENTIN. [Concomitant]
     Active Substance: GABAPENTIN
  10. PROLIA [Concomitant]
     Active Substance: DENOSUMAB
  11. TRAMADOL HCL [Concomitant]
     Active Substance: TRAMADOL HYDROCHLORIDE
  12. PREDNISONE. [Concomitant]
     Active Substance: PREDNISONE
  13. PRAVASTATIN SODIUM. [Concomitant]
     Active Substance: PRAVASTATIN SODIUM
  14. ALPRAZOLAM. [Concomitant]
     Active Substance: ALPRAZOLAM
  15. PREMARIN [Concomitant]
     Active Substance: ESTROGENS, CONJUGATED
  16. MAGNESIUM [Concomitant]
     Active Substance: MAGNESIUM
  17. CALCITRIOL. [Concomitant]
     Active Substance: CALCITRIOL
  18. FOLIC ACID. [Concomitant]
     Active Substance: FOLIC ACID
  19. ASCORBIC ACID. [Concomitant]
     Active Substance: ASCORBIC ACID
  20. LACTOBACILLUS [Concomitant]
     Active Substance: LACTOBACILLUS ACIDOPHILUS
  21. LEVOTHYROXINE SODIUM. [Concomitant]
     Active Substance: LEVOTHYROXINE SODIUM
  22. BIMATOPROST. [Concomitant]
     Active Substance: BIMATOPROST

REACTIONS (1)
  - Hospitalisation [Unknown]
